FAERS Safety Report 5540879-3 (Version None)
Quarter: 2007Q4

REPORT INFORMATION
  Report Type: 
  Country: None (occurrence: None)
  Receive Date: 20071129
  Receipt Date: 20070510
  Transmission Date: 20080405
  Serious: Yes (Hospitalization, Disabling, Other)
  Sender: FDA-Public Use
  Company Number: US200705002931

PATIENT
  Age: 28 Year
  Sex: Male

DRUGS (3)
  1. ZYPREXA [Suspect]
     Indication: SCHIZOPHRENIA
     Dosage: 20 MG,; 7.5 MG,; 5 MG,
     Dates: start: 19970101
  2. ZYPREXA [Suspect]
     Indication: SCHIZOPHRENIA
     Dosage: 20 MG,; 7.5 MG,; 5 MG,
     Dates: start: 20070301
  3. ABILIFY [Concomitant]

REACTIONS (7)
  - ACTIVITIES OF DAILY LIVING IMPAIRED [None]
  - CEREBROVASCULAR ACCIDENT [None]
  - DYSARTHRIA [None]
  - FATIGUE [None]
  - SPEECH DISORDER [None]
  - THINKING ABNORMAL [None]
  - WEIGHT INCREASED [None]
